FAERS Safety Report 7518181-X (Version None)
Quarter: 2011Q2

REPORT INFORMATION
  Report Type: 
  Country: None (occurrence: None)
  Receive Date: 20110602
  Receipt Date: 20110526
  Transmission Date: 20111010
  Serious: Yes (Death, Life-Threatening, Hospitalization, Other)
  Sender: FDA-Public Use
  Company Number: JP-CEPHALON-2011000469

PATIENT
  Sex: Male
  Weight: 78 kg

DRUGS (13)
  1. PANTETHINE [Concomitant]
     Dates: end: 20110113
  2. DEXAMETHASONE SODIUM PHOSPHATE [Concomitant]
     Dates: start: 20110112, end: 20110113
  3. VANCOMYCIN [Concomitant]
     Dates: start: 20110112, end: 20110125
  4. MAGNESIUM OXIDE [Concomitant]
     Dates: end: 20110113
  5. OMEPRAZOLE [Concomitant]
     Dates: end: 20110113
  6. FLUCONAZOLE [Concomitant]
     Dates: end: 20110113
  7. FENTANYL CITRATE [Concomitant]
     Dates: end: 20110125
  8. ACYCLOVIR [Concomitant]
     Dates: start: 20110112, end: 20110117
  9. WARFARIN POTASSIUM [Concomitant]
     Dates: end: 20110113
  10. GRANISETRON HCL [Concomitant]
     Dates: start: 20110112, end: 20110113
  11. MEROPENEM [Concomitant]
     Dates: end: 20110125
  12. BENDAMUSTINE HCL [Suspect]
     Indication: NODAL MARGINAL ZONE B-CELL LYMPHOMA
     Route: 042
     Dates: start: 20110112, end: 20110113
  13. SULFAMETHOXAZOLE AND TRIMETHOPRIM [Concomitant]
     Dates: end: 20110113

REACTIONS (8)
  - HYPERNATRAEMIA [None]
  - QUADRIPLEGIA [None]
  - HYPERURICAEMIA [None]
  - ANAEMIA [None]
  - HYPERCHLORAEMIA [None]
  - WHITE BLOOD CELL COUNT DECREASED [None]
  - CYTOMEGALOVIRUS VIRAEMIA [None]
  - NODAL MARGINAL ZONE B-CELL LYMPHOMA [None]
